FAERS Safety Report 17689250 (Version 1)
Quarter: 2020Q2

REPORT INFORMATION
  Report Type: Report from Study
  Country: None (occurrence: US)
  Receive Date: 20200421
  Receipt Date: 20200421
  Transmission Date: 20200714
  Serious: No
  Sender: FDA-Public Use
  Company Number: US-BIOVITRUM-2020US1902

PATIENT
  Sex: Male

DRUGS (1)
  1. KINERET [Suspect]
     Active Substance: ANAKINRA
     Indication: PRODUCT USED FOR UNKNOWN INDICATION
     Route: 058
     Dates: start: 20200402

REACTIONS (4)
  - Blood cholesterol increased [Unknown]
  - Lymphocyte count increased [Unknown]
  - Coagulation time prolonged [Unknown]
  - Mean platelet volume increased [Unknown]
